FAERS Safety Report 6156101-3 (Version None)
Quarter: 2009Q2

REPORT INFORMATION
  Report Type: 
  Country: None (occurrence: None)
  Receive Date: 20090415
  Receipt Date: 20090409
  Transmission Date: 20091009
  Serious: Yes (Hospitalization, Other)
  Sender: FDA-Public Use
  Company Number: GB-B.I. PHARMACEUTICALS,INC./RIDGEFIELD-2009-UK-00089UK

PATIENT
  Sex: Male

DRUGS (6)
  1. VIRAMUNE [Suspect]
     Indication: HIV INFECTION
     Dosage: 400MG
     Route: 048
     Dates: start: 20081119, end: 20090120
  2. CIPROFLOXACIN [Suspect]
     Indication: URINARY TRACT INFECTION
     Dosage: 1000MG
     Route: 048
     Dates: start: 20090106, end: 20090118
  3. TRUVADA [Concomitant]
     Indication: HIV INFECTION
     Dosage: 1 TABLET ONCE DAILY
     Route: 048
     Dates: start: 20081111, end: 20090401
  4. TETRACYCLINE [Concomitant]
     Indication: URINARY TRACT INFECTION
  5. CEPHRADRINE [Concomitant]
     Indication: URINARY TRACT INFECTION
     Dosage: 1000MG
     Route: 048
     Dates: start: 20081223, end: 20081228
  6. CO-TRIMOXAZOLE [Concomitant]
     Indication: ANTIFUNGAL PROPHYLAXIS
     Dosage: 960MG
     Route: 048
     Dates: start: 20081111, end: 20090120

REACTIONS (5)
  - JAUNDICE [None]
  - LIVER FUNCTION TEST ABNORMAL [None]
  - NEUTROPENIA [None]
  - THROMBOCYTOPENIA [None]
  - URINARY TRACT INFECTION [None]
